FAERS Safety Report 17038489 (Version 1)
Quarter: 2019Q4

REPORT INFORMATION
  Report Type: Spontaneous
  Country: PT (occurrence: PT)
  Receive Date: 20191115
  Receipt Date: 20191115
  Transmission Date: 20200122
  Serious: Yes (Other)
  Sender: FDA-Public Use
  Company Number: PT-PFIZER INC-2019490593

PATIENT
  Age: 67 Year
  Sex: Female

DRUGS (2)
  1. METHOTREXATE SODIUM. [Suspect]
     Active Substance: METHOTREXATE SODIUM
     Indication: RHEUMATOID ARTHRITIS
     Dosage: 7.5 MG, DAILY
  2. DEFLAZACORT [Concomitant]
     Active Substance: DEFLAZACORT
     Indication: RHEUMATOID ARTHRITIS
     Dosage: 30 MG, DAILY

REACTIONS (7)
  - Hepatocellular injury [Recovered/Resolved]
  - Toxic encephalopathy [Recovered/Resolved]
  - Stomatitis [Recovered/Resolved]
  - Hypersensitivity pneumonitis [Recovered/Resolved]
  - Respiratory failure [Recovered/Resolved]
  - Accidental overdose [Recovered/Resolved]
  - Pancytopenia [Recovered/Resolved]
